FAERS Safety Report 12921993 (Version 1)
Quarter: 2016Q4

REPORT INFORMATION
  Report Type: Spontaneous
  Country: US (occurrence: US)
  Receive Date: 20161108
  Receipt Date: 20161108
  Transmission Date: 20170207
  Serious: No
  Sender: FDA-Public Use
  Company Number: US-BAYER-2016-213634

PATIENT
  Age: 88 Year
  Sex: Male
  Weight: 79.37 kg

DRUGS (10)
  1. MIRALAX [Suspect]
     Active Substance: POLYETHYLENE GLYCOL 3350
     Indication: GASTROINTESTINAL DISORDER
     Route: 048
  2. BAYER LOW DOSE [Suspect]
     Active Substance: ASPIRIN
  3. CALCITRIOL. [Concomitant]
     Active Substance: CALCITRIOL
  4. LEVOTHYROXINE. [Concomitant]
     Active Substance: LEVOTHYROXINE
  5. VITAMIN C [Concomitant]
     Active Substance: ASCORBIC ACID
  6. FISH OIL [Concomitant]
     Active Substance: FISH OIL
  7. CENTRUM SILVER [Concomitant]
     Active Substance: MINERALS\VITAMINS
  8. OMEPRAZOLE. [Concomitant]
     Active Substance: OMEPRAZOLE
  9. AMLODIPINE BESYLATE. [Concomitant]
     Active Substance: AMLODIPINE BESYLATE
  10. LOVASTATIN. [Concomitant]
     Active Substance: LOVASTATIN

REACTIONS (2)
  - Product use issue [None]
  - Rash erythematous [Recovering/Resolving]

NARRATIVE: CASE EVENT DATE: 201610
